FAERS Safety Report 21851245 (Version 1)
Quarter: 2023Q1

REPORT INFORMATION
  Report Type: Report from Study
  Country: US (occurrence: US)
  Receive Date: 20230112
  Receipt Date: 20230112
  Transmission Date: 20230417
  Serious: No
  Sender: FDA-Public Use
  Company Number: US-ABBVIE-4233794

PATIENT
  Sex: Female

DRUGS (3)
  1. SKYRIZI [Suspect]
     Active Substance: RISANKIZUMAB-RZAA
     Indication: Psoriasis
     Dosage: DOSAGE: 150 MG/ML WEEK ZERO??STOP DATE- 2022
     Route: 058
     Dates: start: 20220118
  2. SKYRIZI [Suspect]
     Active Substance: RISANKIZUMAB-RZAA
     Dosage: DOSAGE: 150 MG/ML START DATE AND STOP DATE 2022?WEEK FOUR
     Route: 058
  3. SKYRIZI [Suspect]
     Active Substance: RISANKIZUMAB-RZAA
     Dosage: DOSAGE: 150 MG/ML START DATE AND STOP DATE 2022?WEEK 12
     Route: 058

REACTIONS (6)
  - Irritable bowel syndrome [Unknown]
  - Off label use [Unknown]
  - Constipation [Unknown]
  - Rectal spasm [Unknown]
  - Haemorrhoids [Unknown]
  - Diarrhoea [Unknown]
